FAERS Safety Report 22377054 (Version 2)
Quarter: 2023Q2

REPORT INFORMATION
  Report Type: Spontaneous
  Country: US (occurrence: US)
  Receive Date: 20230529
  Receipt Date: 20230531
  Transmission Date: 20230721
  Serious: No
  Sender: FDA-Public Use
  Company Number: US-002147023-NVSC2023US119113

PATIENT
  Sex: Male

DRUGS (1)
  1. DORZOLAMIDE AND TIMOLOL [Suspect]
     Active Substance: DORZOLAMIDE HYDROCHLORIDE\TIMOLOL MALEATE
     Indication: Product used for unknown indication
     Dosage: 1 DRP, Q2W
     Route: 065
     Dates: start: 20230516, end: 20230521

REACTIONS (3)
  - Ocular hyperaemia [Recovering/Resolving]
  - Photophobia [Recovering/Resolving]
  - Eye pain [Recovering/Resolving]
